FAERS Safety Report 21795077 (Version 3)
Quarter: 2023Q1

REPORT INFORMATION
  Report Type: Spontaneous
  Country: IR (occurrence: IR)
  Receive Date: 20221229
  Receipt Date: 20230205
  Transmission Date: 20230417
  Serious: Yes (Hospitalization)
  Sender: FDA-Public Use
  Company Number: IR-BAYER-2022P032654

PATIENT
  Age: 28 Year
  Sex: Male

DRUGS (4)
  1. RIVAROXABAN [Suspect]
     Active Substance: RIVAROXABAN
     Indication: Behcet^s syndrome
     Dosage: 20 MG, QID
     Route: 048
  2. AZATHIOPRINE [Concomitant]
     Active Substance: AZATHIOPRINE
     Dosage: 100 MG, QID
  3. PREDNISOLONE [Concomitant]
     Active Substance: PREDNISOLONE
     Dosage: 30 MG, QID
  4. COLCHICINE [Concomitant]
     Active Substance: COLCHICINE
     Dosage: 1 MG, QID

REACTIONS (4)
  - Vascular pseudoaneurysm ruptured [Unknown]
  - Chest wall haematoma [Unknown]
  - Tracheal deviation [Unknown]
  - Off label use [Unknown]
